FAERS Safety Report 6215068-X (Version None)
Quarter: 2009Q2

REPORT INFORMATION
  Report Type: 
  Country: None (occurrence: None)
  Receive Date: 20090604
  Receipt Date: 20090223
  Transmission Date: 20091009
  Serious: No
  Sender: FDA-Public Use
  Company Number: US-ASTRAZENECA-2009UW04919

PATIENT
  Age: 52 Year
  Sex: Female
  Weight: 54.4 kg

DRUGS (9)
  1. PRILOSEC [Suspect]
     Dosage: UNKNOWN
     Route: 048
  2. CITALOPRAM HYDROBROMIDE [Concomitant]
     Indication: ANXIETY
  3. DEXAMETHASONE [Concomitant]
     Indication: CHEMOTHERAPY
  4. HYDROMORPHONE [Concomitant]
     Indication: NEOPLASM MALIGNANT
  5. IRON [Concomitant]
     Indication: PROPHYLAXIS
  6. METOCLOPRAMIDE [Concomitant]
     Indication: NAUSEA
  7. MIRALAX [Concomitant]
     Indication: FAECES HARD
  8. MORPHINE [Concomitant]
     Indication: NEOPLASM MALIGNANT
  9. ONEANSETRON HCL [Concomitant]
     Indication: NAUSEA

REACTIONS (1)
  - ILL-DEFINED DISORDER [None]
